FAERS Safety Report 11474649 (Version 2)
Quarter: 2020Q2

REPORT INFORMATION
  Report Type: Spontaneous
  Country: US (occurrence: US)
  Receive Date: 20150908
  Receipt Date: 20200630
  Transmission Date: 20200713
  Serious: No
  Sender: FDA-Public Use
  Company Number: US-JAZZ-2014-US-006831

PATIENT
  Age: 29 Year
  Sex: Male

DRUGS (35)
  1. GABAPENTIN. [Concomitant]
     Active Substance: GABAPENTIN
  2. PRILOSEC [Concomitant]
     Active Substance: OMEPRAZOLE MAGNESIUM
  3. XYREM [Suspect]
     Active Substance: SODIUM OXYBATE
     Dosage: 4.5 GRAM, BID
     Route: 048
     Dates: start: 201906
  4. ONDANSETRON [Concomitant]
     Active Substance: ONDANSETRON
  5. TOPAMAX [Concomitant]
     Active Substance: TOPIRAMATE
  6. NORVASC [Concomitant]
     Active Substance: AMLODIPINE BESYLATE
  7. NIFEDIPINE. [Concomitant]
     Active Substance: NIFEDIPINE
  8. AMPHETAMINE [Concomitant]
     Active Substance: AMPHETAMINE
  9. LABETALOL HCL [Concomitant]
     Active Substance: LABETALOL HYDROCHLORIDE
  10. HYDROXYCHLOROQUINE [Concomitant]
     Active Substance: HYDROXYCHLOROQUINE
  11. AMBIEN [Concomitant]
     Active Substance: ZOLPIDEM TARTRATE
  12. ATENOLOL. [Concomitant]
     Active Substance: ATENOLOL
  13. ADDERALL [Concomitant]
     Active Substance: AMPHETAMINE ASPARTATE\AMPHETAMINE SULFATE\DEXTROAMPHETAMINE SACCHARATE\DEXTROAMPHETAMINE SULFATE
  14. LISINOPRIL. [Concomitant]
     Active Substance: LISINOPRIL
  15. METHYLPHENIDATE. [Concomitant]
     Active Substance: METHYLPHENIDATE
  16. OMEPRAZOLE. [Concomitant]
     Active Substance: OMEPRAZOLE
  17. CIPROFLOXACIN HCL [Concomitant]
     Active Substance: CIPROFLOXACIN HYDROCHLORIDE
  18. TAMSULOSIN HCL [Concomitant]
     Active Substance: TAMSULOSIN HYDROCHLORIDE
  19. TYLENOL PM EXTRA STRENGTH [Concomitant]
     Active Substance: ACETAMINOPHEN\DIPHENHYDRAMINE HYDROCHLORIDE
  20. AMITRIPTYLINE HCL [Concomitant]
     Active Substance: AMITRIPTYLINE
  21. SUNOSI [Concomitant]
     Active Substance: SOLRIAMFETOL
  22. WAKIX [Concomitant]
     Active Substance: PITOLISANT HYDROCHLORIDE
  23. XYREM [Suspect]
     Active Substance: SODIUM OXYBATE
     Indication: CATAPLEXY
     Dosage: DOSE ADJUSTMENT
     Route: 048
     Dates: start: 201406, end: 201906
  24. CONCERTA [Concomitant]
     Active Substance: METHYLPHENIDATE HYDROCHLORIDE
  25. MODAFINIL. [Concomitant]
     Active Substance: MODAFINIL
  26. VERAPAMIL [Concomitant]
     Active Substance: VERAPAMIL HYDROCHLORIDE
  27. PHENERGAN [Concomitant]
     Active Substance: PROMETHAZINE HYDROCHLORIDE
  28. CLONIDINE HCL [Concomitant]
     Active Substance: CLONIDINE HYDROCHLORIDE
  29. IBUPROFEN. [Concomitant]
     Active Substance: IBUPROFEN
  30. XYREM [Suspect]
     Active Substance: SODIUM OXYBATE
     Indication: NARCOLEPSY
     Dosage: 2.25 G, BID
     Route: 048
     Dates: start: 201405, end: 201406
  31. HYDROCODONE/ACETAMINOPHEN [Concomitant]
     Active Substance: ACETAMINOPHEN\HYDROCODONE
  32. PHENAZOPYRIDINE. [Concomitant]
     Active Substance: PHENAZOPYRIDINE
  33. FUROSEMIDE. [Concomitant]
     Active Substance: FUROSEMIDE
  34. SUMATRIPTAN SUCCINATE. [Concomitant]
     Active Substance: SUMATRIPTAN SUCCINATE
  35. DOCUSATE SODIUM. [Concomitant]
     Active Substance: DOCUSATE SODIUM

REACTIONS (2)
  - Intentional product misuse [Unknown]
  - Migraine [Recovering/Resolving]

NARRATIVE: CASE EVENT DATE: 201405
